FAERS Safety Report 9263805 (Version 1)
Quarter: 2013Q2

REPORT INFORMATION
  Report Type: Spontaneous
  Country: US (occurrence: None)
  Receive Date: 20130429
  Receipt Date: 20130429
  Transmission Date: 20140414
  Serious: Yes (Hospitalization)
  Sender: FDA-Public Use
  Company Number: None

PATIENT
  Age: 42 Year
  Sex: Female
  Weight: 63.5 kg

DRUGS (2)
  1. CAMILA [Suspect]
     Indication: CONTRACEPTION
     Dosage: 1 PILL
     Route: 048
     Dates: start: 20130101, end: 20130220
  2. CAMILA [Suspect]
     Indication: BREAST FEEDING
     Dosage: 1 PILL
     Route: 048
     Dates: start: 20130101, end: 20130220

REACTIONS (2)
  - Vertigo [None]
  - Activities of daily living impaired [None]
